FAERS Safety Report 4888706-1 (Version None)
Quarter: 2005Q4

REPORT INFORMATION
  Report Type: 
  Country: None (occurrence: None)
  Receive Date: 20051215
  Receipt Date: 20050606
  Transmission Date: 20060501
  Serious: Yes (Life-Threatening, Other)
  Sender: FDA-Public Use
  Company Number: 2005075457

PATIENT
  Age: 67 Year
  Sex: Female
  Weight: 65.7716 kg

DRUGS (4)
  1. BEXTRA [Suspect]
     Indication: ARTHRITIS
     Dosage: 40 MG (20 MG, 2 IN 1 D), ORAL
     Route: 048
     Dates: end: 20050507
  2. SYNTHROID [Concomitant]
  3. WELLBUTRIN [Concomitant]
  4. DESYREL [Concomitant]

REACTIONS (4)
  - CHEST PAIN [None]
  - INCORRECT DOSE ADMINISTERED [None]
  - MUSCULOSKELETAL CHEST PAIN [None]
  - PAIN [None]
